FAERS Safety Report 15062127 (Version 1)
Quarter: 2018Q2

REPORT INFORMATION
  Report Type: Spontaneous
  Country: US (occurrence: US)
  Receive Date: 20180625
  Receipt Date: 20180625
  Transmission Date: 20180711
  Serious: No
  Sender: FDA-Public Use
  Company Number: US-ALLERGAN-1769828US

PATIENT
  Sex: Female

DRUGS (1)
  1. LO LOESTRIN FE [Suspect]
     Active Substance: ETHINYL ESTRADIOL\NORETHINDRONE ACETATE
     Indication: CONTRACEPTION
     Dosage: 1 PILL DAILY AT THE SAME TIME EVERYDAY
     Route: 048
     Dates: end: 2017

REACTIONS (2)
  - Drug ineffective [Unknown]
  - Pregnancy [Unknown]

NARRATIVE: CASE EVENT DATE: 2017
